FAERS Safety Report 10564540 (Version 1)
Quarter: 2014Q4

REPORT INFORMATION
  Report Type: Spontaneous
  Country: US (occurrence: US)
  Receive Date: 20141104
  Receipt Date: 20141104
  Transmission Date: 20150529
  Serious: No
  Sender: FDA-Public Use
  Company Number: US-MALLINCKRODT-T201402270

PATIENT
  Age: 66 Year
  Sex: Female

DRUGS (2)
  1. FENTANYL TRANSDERMAL SYSTEM [Suspect]
     Active Substance: FENTANYL
     Indication: PAIN
     Dosage: 100 UG/HR, Q72H
     Route: 062
     Dates: start: 201403
  2. FENTANYL. [Concomitant]
     Active Substance: FENTANYL
     Dosage: 100 MCG/HR, Q 72 HOURS
     Route: 062
     Dates: end: 201403

REACTIONS (3)
  - Product quality issue [Recovered/Resolved]
  - Inappropriate schedule of drug administration [Unknown]
  - Drug ineffective [Recovered/Resolved]

NARRATIVE: CASE EVENT DATE: 20140522
